FAERS Safety Report 6758586-8 (Version None)
Quarter: 2010Q2

REPORT INFORMATION
  Report Type: 
  Country: None (occurrence: None)
  Receive Date: 20100602
  Receipt Date: 20100419
  Transmission Date: 20101027
  Serious: Yes (Other)
  Sender: FDA-Public Use
  Company Number: CV20100235

PATIENT
  Age: 59 Year
  Sex: Male

DRUGS (4)
  1. PROPOFOL [Suspect]
     Indication: INDUCTION OF ANAESTHESIA
  2. MIDAZOLAM (MANUFACTURER UNKNOWN) (MIDAZOLAM HYDROCHLORID) (MIDAZOLAM H [Suspect]
     Indication: INDUCTION OF ANAESTHESIA
  3. REMIFENTANIL (MANUFACTURER UNKNOWN) (REMIFENTANIL) (REMIFENTANIL) [Concomitant]
  4. FLUMAZENIL (MANUFACTURER UNKNOWN) (FLUMAZENIL) (FLUMAZENIL) [Concomitant]

REACTIONS (4)
  - HYPOXIA [None]
  - MUSCLE RIGIDITY [None]
  - MYDRIASIS [None]
  - PSYCHOMOTOR HYPERACTIVITY [None]
